FAERS Safety Report 16846131 (Version 2)
Quarter: 2021Q3

REPORT INFORMATION
  Report Type: Spontaneous
  Country: US (occurrence: US)
  Receive Date: 20190924
  Receipt Date: 20210726
  Transmission Date: 20211014
  Serious: Yes (Other)
  Sender: FDA-Public Use
  Company Number: US-TEVA-2019-US-1111441

PATIENT
  Age: 47 Year
  Sex: Male

DRUGS (7)
  1. HYDROCHLORTHIAZIDE [Concomitant]
     Active Substance: HYDROCHLOROTHIAZIDE
     Indication: HYPERTENSION
     Route: 065
  2. VALSARTAN TEVA [Suspect]
     Active Substance: VALSARTAN
     Dosage: 80 MILLIGRAM DAILY;
     Route: 048
  3. LOSARTAN. [Concomitant]
     Active Substance: LOSARTAN
     Indication: HYPERTENSION
     Route: 065
  4. VALSARTAN TEVA [Suspect]
     Active Substance: VALSARTAN
     Indication: HYPERTENSION
     Dosage: 40 MILLIGRAM DAILY;
     Route: 048
  5. VALSARTAN HYDROCHLORTHIAZIDE MACLEODS [Suspect]
     Active Substance: HYDROCHLOROTHIAZIDE\VALSARTAN
     Indication: HYPERTENSION
     Dosage: 160?25 MG
     Route: 048
  6. VALSARTAN TEVA [Suspect]
     Active Substance: VALSARTAN
     Dosage: 40 MILLIGRAM DAILY;
     Route: 048
  7. VALSARTAN TEVA [Suspect]
     Active Substance: VALSARTAN
     Dosage: 80 MILLIGRAM DAILY;
     Route: 048

REACTIONS (2)
  - Recalled product administered [Unknown]
  - Renal mass [Unknown]

NARRATIVE: CASE EVENT DATE: 2015
